FAERS Safety Report 4613765-0 (Version None)
Quarter: 2005Q1

REPORT INFORMATION
  Report Type: 
  Country: None (occurrence: None)
  Receive Date: 20050321
  Receipt Date: 20050318
  Transmission Date: 20050727
  Serious: Yes (Death)
  Sender: FDA-Public Use
  Company Number: PHBS2005SE03942

PATIENT
  Age: 83 Year
  Sex: Female

DRUGS (1)
  1. SANDIMMUNE [Suspect]

REACTIONS (1)
  - NEOPLASM MALIGNANT [None]
